FAERS Safety Report 8258700-1 (Version None)
Quarter: 2012Q2

REPORT INFORMATION
  Report Type: 
  Country: None (occurrence: None)
  Receive Date: 20120404
  Receipt Date: 20120326
  Transmission Date: 20120825
  Serious: Yes (Other)
  Sender: FDA-Public Use
  Company Number: US-JNJFOC-20111002616

PATIENT
  Sex: Female
  Weight: 102.06 kg

DRUGS (11)
  1. HYDROCHLOROTHIAZIDE [Concomitant]
     Indication: HYPERTENSION
     Route: 048
     Dates: start: 20000101
  2. PREMARIN [Concomitant]
     Indication: HORMONE REPLACEMENT THERAPY
     Dosage: 1.25 (UNITS UNSPECIFIED)
     Route: 048
     Dates: start: 19990101
  3. AMITRIPTYLINE HCL [Concomitant]
     Indication: DEPRESSION
     Route: 048
     Dates: start: 20120101
  4. PROZAC [Concomitant]
     Route: 048
     Dates: start: 19890101
  5. DURAGESIC-100 [Suspect]
     Route: 062
     Dates: start: 20050101, end: 20070101
  6. LOSARTAN POTASSIUM [Concomitant]
     Indication: HYPERTENSION
     Route: 048
     Dates: start: 20000101
  7. DURAGESIC-100 [Suspect]
     Indication: BACK PAIN
     Route: 062
     Dates: start: 20040101
  8. PROZAC [Concomitant]
     Indication: DEPRESSION
     Route: 048
  9. VERAPAMIL [Concomitant]
     Indication: HYPERTENSION
     Route: 048
     Dates: start: 20000101
  10. DURAGESIC-100 [Suspect]
     Route: 062
     Dates: start: 20070101
  11. PREMARIN [Concomitant]
     Route: 048

REACTIONS (7)
  - PRODUCT PACKAGING QUANTITY ISSUE [None]
  - HYPERHIDROSIS [None]
  - PRODUCT QUALITY ISSUE [None]
  - MENOPAUSE [None]
  - HYPOTHYROIDISM [None]
  - WRONG TECHNIQUE IN DRUG USAGE PROCESS [None]
  - DRUG DOSE OMISSION [None]
